FAERS Safety Report 10029181 (Version 2)
Quarter: 2014Q1

REPORT INFORMATION
  Report Type: Report from Study
  Country: US (occurrence: US)
  Receive Date: 20140321
  Receipt Date: 20140327
  Transmission Date: 20141002
  Serious: Yes (Other)
  Sender: FDA-Public Use
  Company Number: US-GILEAD-2014-0097257

PATIENT
  Sex: Male

DRUGS (3)
  1. TENOFOVIR DISOPROXIL FUMARATE [Suspect]
     Indication: HIV INFECTION
     Dosage: 300 MG, UNK
     Route: 064
     Dates: start: 20130125, end: 20130228
  2. SUSTIVA [Suspect]
     Indication: HIV INFECTION
     Dosage: 60 MG, UNK
     Route: 064
     Dates: start: 20130125, end: 20130228
  3. LAMIVUDINE [Suspect]
     Indication: HIV INFECTION
     Dosage: 100 MG, UNK
     Route: 064
     Dates: start: 20130125, end: 20130228

REACTIONS (1)
  - Foetal heart rate abnormal [Unknown]
